FAERS Safety Report 4362473-2 (Version None)
Quarter: 2004Q2

REPORT INFORMATION
  Report Type: 
  Country: None (occurrence: None)
  Receive Date: 20040521
  Receipt Date: 20040511
  Transmission Date: 20050107
  Serious: Yes (Other)
  Sender: FDA-Public Use
  Company Number: FR-GLAXOSMITHKLINE-B0333209A

PATIENT

DRUGS (2)
  1. DEROXAT [Suspect]
     Dosage: 40MG PER DAY
     Route: 048
  2. MYOLASTAN [Suspect]
     Indication: SCIATICA

REACTIONS (6)
  - DRUG INTERACTION [None]
  - GAIT DISTURBANCE [None]
  - HYPERHIDROSIS [None]
  - MALAISE [None]
  - SEROTONIN SYNDROME [None]
  - TACHYCARDIA [None]
